FAERS Safety Report 9140159 (Version 3)
Quarter: 2013Q2

REPORT INFORMATION
  Report Type: Spontaneous
  Country: US (occurrence: US)
  Receive Date: 20130305
  Receipt Date: 20130403
  Transmission Date: 20140414
  Serious: No
  Sender: FDA-Public Use
  Company Number: US-009507513-1303USA001485

PATIENT
  Sex: Male

DRUGS (2)
  1. EMEND [Suspect]
     Dosage: UNK
     Route: 048
  2. EMEND [Suspect]
     Dosage: 3 CAPSULES
     Route: 048
     Dates: start: 20130227

REACTIONS (5)
  - Poor quality drug administered [Unknown]
  - Poor quality drug administered [Unknown]
  - Product quality issue [Unknown]
  - Product quality issue [Unknown]
  - No adverse event [Unknown]
